FAERS Safety Report 13757921 (Version 5)
Quarter: 2017Q3

REPORT INFORMATION
  Report Type: Spontaneous
  Country: IT (occurrence: IT)
  Receive Date: 20170717
  Receipt Date: 20170810
  Transmission Date: 20171127
  Serious: Yes (Hospitalization)
  Sender: FDA-Public Use
  Company Number: PL-009507513-1707POL003546

PATIENT
  Age: 66 Year
  Sex: Female
  Weight: 63 kg

DRUGS (4)
  1. CHLOROQUINE PHOSPHATE. [Concomitant]
     Active Substance: CHLOROQUINE PHOSPHATE
     Indication: SYSTEMIC LUPUS ERYTHEMATOSUS
     Dosage: 1 DOSE UNIT, QD
     Route: 048
  2. ZEPATIER [Suspect]
     Active Substance: ELBASVIR\GRAZOPREVIR
     Indication: CHRONIC HEPATITIS C
     Dosage: 1 DOSE UNIT, QD
     Route: 048
     Dates: start: 20170413
  3. MODERIBA [Suspect]
     Active Substance: RIBAVIRIN
     Indication: CHRONIC HEPATITIS C
     Dosage: 2 DOSE UNIT, QD
     Route: 048
     Dates: start: 20170413
  4. PARIET [Concomitant]
     Active Substance: RABEPRAZOLE SODIUM
     Dosage: 1 DOSE UNIT, QD
     Route: 048

REACTIONS (1)
  - Pneumonia [Recovering/Resolving]

NARRATIVE: CASE EVENT DATE: 20170610
